FAERS Safety Report 13930693 (Version 2)
Quarter: 2017Q3

REPORT INFORMATION
  Report Type: Spontaneous
  Country: JP (occurrence: JP)
  Receive Date: 20170901
  Receipt Date: 20170915
  Transmission Date: 20171127
  Serious: Yes (Other)
  Sender: FDA-Public Use
  Company Number: JP-BAXTER-2017BAX031236

PATIENT
  Age: 72 Year
  Sex: Female

DRUGS (3)
  1. VINCRISTINE SULFATE. [Suspect]
     Active Substance: VINCRISTINE SULFATE
     Indication: PHAEOCHROMOCYTOMA
     Route: 065
  2. ENDOXAN LYOPHILISAT [Suspect]
     Active Substance: CYCLOPHOSPHAMIDE
     Indication: PHAEOCHROMOCYTOMA
     Route: 065
  3. DACARBAZINE. [Suspect]
     Active Substance: DACARBAZINE
     Indication: PHAEOCHROMOCYTOMA
     Route: 065

REACTIONS (4)
  - Hypertension [Recovering/Resolving]
  - Hyperglycaemia [Recovering/Resolving]
  - Stress cardiomyopathy [Unknown]
  - Phaeochromocytoma crisis [Unknown]
